FAERS Safety Report 12310749 (Version 4)
Quarter: 2016Q2

REPORT INFORMATION
  Report Type: Spontaneous
  Country: US (occurrence: US)
  Receive Date: 20160427
  Receipt Date: 20160526
  Transmission Date: 20160815
  Serious: Yes (Death)
  Sender: FDA-Public Use
  Company Number: US-ACTELION PHARMACEUTICALS US, INC.-A-NJ2016-135155

PATIENT
  Age: 69 Year
  Sex: Female

DRUGS (2)
  1. OPSUMIT [Suspect]
     Active Substance: MACITENTAN
     Indication: PULMONARY ARTERIAL HYPERTENSION
     Dosage: 10 MG, QD
     Route: 048
     Dates: start: 20160406, end: 20160516
  2. SILDENAFIL. [Concomitant]
     Active Substance: SILDENAFIL

REACTIONS (11)
  - Musculoskeletal pain [Unknown]
  - Nausea [Unknown]
  - Constipation [Unknown]
  - Gastrointestinal disorder [Not Recovered/Not Resolved]
  - Visual acuity reduced [Not Recovered/Not Resolved]
  - Death [Fatal]
  - Diarrhoea [Unknown]
  - Condition aggravated [Not Recovered/Not Resolved]
  - Unevaluable event [Not Recovered/Not Resolved]
  - Abdominal pain [Not Recovered/Not Resolved]
  - Macular degeneration [Not Recovered/Not Resolved]

NARRATIVE: CASE EVENT DATE: 20160516
